FAERS Safety Report 7405878-5 (Version None)
Quarter: 2011Q2

REPORT INFORMATION
  Report Type: 
  Country: None (occurrence: None)
  Receive Date: 20110411
  Receipt Date: 20110406
  Transmission Date: 20111010
  Serious: Yes (Other)
  Sender: FDA-Public Use
  Company Number: BR-ROCHE-769669

PATIENT
  Sex: Female
  Weight: 62 kg

DRUGS (7)
  1. DORMONID [Concomitant]
     Dosage: FREQUENCY: 1 TABLET BEFORE SLEEP
     Dates: start: 20101001
  2. RIVOTRIL [Suspect]
     Dosage: FREQUENCY: 1 TABLET 2 HRS BEFORE SLEEP
     Route: 065
     Dates: start: 20010101
  3. DIMETHICONE [Concomitant]
     Indication: FLATULENCE
     Dosage: FREQUENCY:AFTER MEALS
  4. GINKGO BILOBA [Concomitant]
     Dates: start: 19900101
  5. VITAMIN E [Concomitant]
     Indication: OSTEOPOROSIS
     Dates: start: 19900101
  6. LOSARTAN [Concomitant]
     Indication: BLOOD PRESSURE ABNORMAL
     Dates: start: 20060101
  7. PANTOCAL [Concomitant]
     Dosage: FREQUENCY: ONCE A DAY( NOT ALWAYS)
     Dates: start: 20110101

REACTIONS (3)
  - CEREBROVASCULAR ACCIDENT [None]
  - DRUG INEFFECTIVE [None]
  - INSOMNIA [None]
